FAERS Safety Report 9692641 (Version 1)
Quarter: 2013Q4

REPORT INFORMATION
  Report Type: Spontaneous
  Country: US (occurrence: None)
  Receive Date: 20131115
  Receipt Date: 20131115
  Transmission Date: 20140711
  Serious: No
  Sender: FDA-Public Use
  Company Number: None

PATIENT
  Age: 70 Year
  Sex: Female
  Weight: 58.06 kg

DRUGS (1)
  1. CIPRO [Suspect]
     Indication: URINARY TRACT INFECTION
     Dosage: 10 PILLS TWICE DAILY TAKEN BY MOUTH
     Route: 048
     Dates: start: 20131104, end: 20131104

REACTIONS (5)
  - Diarrhoea [None]
  - Nausea [None]
  - Muscular weakness [None]
  - Visual impairment [None]
  - Dyspepsia [None]
